FAERS Safety Report 4936995-7 (Version None)
Quarter: 2006Q1

REPORT INFORMATION
  Report Type: 
  Country: None (occurrence: None)
  Receive Date: 20060309
  Receipt Date: 20060224
  Transmission Date: 20060701
  Serious: Yes (Hospitalization, Other)
  Sender: FDA-Public Use
  Company Number: FR-RB-2834-2006

PATIENT
  Age: 21 Year
  Sex: Male

DRUGS (1)
  1. BUPRENORPHINE HCL [Suspect]
     Indication: DRUG DEPENDENCE
     Route: 042
     Dates: end: 20000610

REACTIONS (5)
  - DRUG ABUSER [None]
  - HEPATITIS C [None]
  - INTENTIONAL DRUG MISUSE [None]
  - PLEURAL EFFUSION [None]
  - PNEUMONIA [None]
